FAERS Safety Report 18784872 (Version 1)
Quarter: 2021Q1

REPORT INFORMATION
  Report Type: Other
  Country: US (occurrence: US)
  Receive Date: 20210125
  Receipt Date: 20210125
  Transmission Date: 20210419
  Serious: Yes (Hospitalization, Other)
  Sender: FDA-Public Use
  Company Number: US-ROCHE-2547126

PATIENT
  Age: 64 Year
  Sex: Male

DRUGS (13)
  1. EPLERENONE. [Concomitant]
     Active Substance: EPLERENONE
  2. CYCLOPHOSPHAMIDE. [Concomitant]
     Active Substance: CYCLOPHOSPHAMIDE
     Route: 048
  3. SOTALOL. [Concomitant]
     Active Substance: SOTALOL
  4. SIMVASTATIN. [Concomitant]
     Active Substance: SIMVASTATIN
  5. ALLOPURINOL. [Concomitant]
     Active Substance: ALLOPURINOL
  6. CYCLOBENZAPRINE. [Concomitant]
     Active Substance: CYCLOBENZAPRINE
  7. DIPHENHYDRAMINE. [Concomitant]
     Active Substance: DIPHENHYDRAMINE
  8. POTASSIUM CHLORIDE. [Concomitant]
     Active Substance: POTASSIUM CHLORIDE
  9. PREDNISONE. [Concomitant]
     Active Substance: PREDNISONE
     Route: 048
  10. RITUXIMAB. [Suspect]
     Active Substance: RITUXIMAB
     Indication: ACUTE KIDNEY INJURY
     Route: 042
  11. RIVAROXABAN [Concomitant]
     Active Substance: RIVAROXABAN
  12. FUROSEMIDE. [Concomitant]
     Active Substance: FUROSEMIDE
  13. IBUPROFEN. [Concomitant]
     Active Substance: IBUPROFEN

REACTIONS (2)
  - Cytomegalovirus infection [Unknown]
  - Enterobacter infection [Unknown]
